FAERS Safety Report 7635902-6 (Version None)
Quarter: 2011Q3

REPORT INFORMATION
  Report Type: 
  Country: None (occurrence: None)
  Receive Date: 20110726
  Receipt Date: 20110712
  Transmission Date: 20111222
  Serious: Yes (Other)
  Sender: FDA-Public Use
  Company Number: US-BAYER-2011-061637

PATIENT
  Age: 64 Year
  Sex: Female
  Weight: 54.422 kg

DRUGS (7)
  1. ZANTAC [Concomitant]
  2. ASPIRIN [Suspect]
     Dosage: UNK
     Route: 048
     Dates: start: 20100101, end: 20110711
  3. ASPIRIN [Suspect]
     Indication: ISCHAEMIC HEART DISEASE PROPHYLAXIS
     Dosage: UNK
     Route: 048
     Dates: end: 20110711
  4. CALCIUM ACETATE [Concomitant]
  5. NADOLOL [Concomitant]
  6. AVAPRO [Concomitant]
  7. MULTI-VITAMIN [Concomitant]

REACTIONS (4)
  - GASTRITIS EROSIVE [None]
  - CAROTID ARTERY ANEURYSM [None]
  - ABDOMINAL DISCOMFORT [None]
  - GASTRIC ULCER [None]
